FAERS Safety Report 18946269 (Version 2)
Quarter: 2021Q1

REPORT INFORMATION
  Report Type: Spontaneous
  Country: US (occurrence: US)
  Receive Date: 20210226
  Receipt Date: 20210315
  Transmission Date: 20210420
  Serious: No
  Sender: FDA-Public Use
  Company Number: US-BIOVITRUM-2021US1821

PATIENT
  Age: 5 Month
  Sex: Male

DRUGS (3)
  1. SYNAGIS [Suspect]
     Active Substance: PALIVIZUMAB
     Indication: LARYNGOMALACIA
     Dosage: 100MG/ML, 50MG/0.5ML
     Route: 030
     Dates: start: 20201205
  2. SYNAGIS [Suspect]
     Active Substance: PALIVIZUMAB
     Indication: CYTOGENETIC ABNORMALITY
  3. SYNAGIS [Suspect]
     Active Substance: PALIVIZUMAB
     Indication: PREMATURE BABY

REACTIONS (2)
  - Weight increased [Unknown]
  - Off label use [Not Recovered/Not Resolved]

NARRATIVE: CASE EVENT DATE: 20201205
